FAERS Safety Report 8222904-4 (Version None)
Quarter: 2012Q1

REPORT INFORMATION
  Report Type: 
  Country: None (occurrence: None)
  Receive Date: 20120320
  Receipt Date: 20120316
  Transmission Date: 20120608
  Serious: Yes (Disabling, Other)
  Sender: FDA-Public Use
  Company Number: NO-ASTRAZENECA-2012SE18256

PATIENT
  Age: 56 Year
  Sex: Male

DRUGS (2)
  1. XYLOCAINE [Suspect]
     Indication: LOCAL ANAESTHESIA
     Route: 051
     Dates: start: 20080528, end: 20080528
  2. MARCAINE [Suspect]
     Indication: LOCAL ANAESTHESIA
     Route: 051
     Dates: start: 20080528, end: 20080528

REACTIONS (2)
  - EYELID DISORDER [None]
  - NEUROPATHY PERIPHERAL [None]
